FAERS Safety Report 24972723 (Version 1)
Quarter: 2025Q1

REPORT INFORMATION
  Report Type: Spontaneous
  Country: DE (occurrence: DE)
  Receive Date: 20250215
  Receipt Date: 20250215
  Transmission Date: 20250408
  Serious: Yes (Death, Hospitalization, Other)
  Sender: UNITED THERAPEUTICS
  Company Number: DE-UNITED THERAPEUTICS-UNT-2025-005420

PATIENT

DRUGS (2)
  1. REMODULIN [Suspect]
     Active Substance: TREPROSTINIL
     Indication: Pulmonary arterial hypertension
  2. REMODULIN [Suspect]
     Active Substance: TREPROSTINIL

REACTIONS (1)
  - Pulmonary arterial hypertension [Fatal]
